FAERS Safety Report 10523971 (Version 2)
Quarter: 2015Q3

REPORT INFORMATION
  Report Type: Spontaneous
  Country: KR (occurrence: KR)
  Receive Date: 20141017
  Receipt Date: 20150917
  Transmission Date: 20151125
  Serious: Yes (Death)
  Sender: FDA-Public Use
  Company Number: KR-AMGEN-KOROT2014079229

PATIENT
  Age: 74 Year
  Sex: Male
  Weight: 48 kg

DRUGS (22)
  1. MEGESTROL ACETATE. [Concomitant]
     Active Substance: MEGESTROL ACETATE
     Dosage: 1PK,UNK
     Route: 048
     Dates: start: 20140922, end: 20140930
  2. CYTARABINE. [Concomitant]
     Active Substance: CYTARABINE
     Dosage: 2380 MG, UNK
     Route: 042
     Dates: start: 20140918, end: 20140921
  3. CASPOFUNGIN ACETATE [Concomitant]
     Active Substance: CASPOFUNGIN ACETATE
     Dosage: 50 MG, UNK
     Route: 042
     Dates: start: 20140927, end: 20140930
  4. G-LASTA [Suspect]
     Active Substance: PEGFILGRASTIM
     Indication: PROPHYLAXIS
     Dosage: 6 MG, Q3WK
     Route: 058
     Dates: start: 20140923
  5. GRAN [Suspect]
     Active Substance: FILGRASTIM
     Indication: FEBRILE NEUTROPENIA
     Dosage: 150 MUG, AS NEEDED
     Route: 058
     Dates: start: 20140926, end: 20140928
  6. FUROSEMIDE. [Concomitant]
     Active Substance: FUROSEMIDE
     Dosage: 20 MG, UNK
     Route: 042
     Dates: start: 20140918, end: 20140930
  7. RAMOSETRON HCL [Concomitant]
     Dosage: 0.1 MG, UNK
     Route: 048
     Dates: start: 20140920, end: 20140921
  8. RIFAMPIN. [Concomitant]
     Active Substance: RIFAMPIN
     Dosage: 450 MG, UNK
     Route: 048
     Dates: start: 20140920, end: 20140930
  9. PYRAZINAMIDE. [Concomitant]
     Active Substance: PYRAZINAMIDE
     Dosage: 1500 MG, UNK
     Route: 048
     Dates: start: 20140920, end: 20140930
  10. FLUCONAZOLE. [Concomitant]
     Active Substance: FLUCONAZOLE
     Dosage: 200 MG, UNK
     Route: 048
     Dates: start: 20140916, end: 20140925
  11. MEROPENEM TRIHYDRATE [Concomitant]
     Active Substance: MEROPENEM
     Dosage: 1500 MG, UNK
     Route: 042
     Dates: start: 20140926, end: 20140930
  12. VANCOMYCIN HCL [Concomitant]
     Active Substance: VANCOMYCIN HYDROCHLORIDE
     Dosage: 2 G, UNK
     Route: 042
     Dates: start: 20140926, end: 20140929
  13. CISPLATIN. [Concomitant]
     Active Substance: CISPLATIN
     Dosage: 37 MG, UNK
     Route: 042
     Dates: start: 20140918, end: 20140921
  14. ETHAMBUTOL HCL [Concomitant]
     Active Substance: ETHAMBUTOL HYDROCHLORIDE
     Dosage: 800 MG, UNK
     Route: 048
     Dates: start: 20140920, end: 20140930
  15. ISONIAZID. [Concomitant]
     Active Substance: ISONIAZID
     Dosage: 300 MG, UNK
     Route: 048
     Dates: start: 20140920, end: 20140930
  16. SALBUTAMOL SULFATE [Concomitant]
     Active Substance: ALBUTEROL SULFATE
     Dosage: 20 ML, UNK
     Route: 055
     Dates: start: 20140925, end: 20140930
  17. PROPACETAMOL HCL [Concomitant]
     Dosage: 2 G, UNK
     Route: 042
     Dates: start: 20140926, end: 20140929
  18. METHYLPREDNISOLONE. [Concomitant]
     Active Substance: METHYLPREDNISOLONE
     Dosage: 500 MG, UNK
     Route: 042
     Dates: start: 20140918, end: 20140921
  19. SEPTRIN [Concomitant]
     Active Substance: SULFAMETHOXAZOLE\TRIMETHOPRIM
     Dosage: 2TAB,UNK
     Route: 048
     Dates: start: 20140916, end: 20140930
  20. TNA PERI [Concomitant]
     Dosage: 1680 ML, UNK
     Route: 042
     Dates: start: 20140913, end: 20140930
  21. APREPITANT. [Concomitant]
     Active Substance: APREPITANT
     Dosage: 80 MG, UNK
     Route: 048
     Dates: start: 20140919, end: 20140920
  22. ETOPOSIDE. [Concomitant]
     Active Substance: ETOPOSIDE
     Dosage: 71 MG, UNK
     Route: 042
     Dates: start: 20140918, end: 20140921

REACTIONS (2)
  - Febrile neutropenia [Fatal]
  - Disease progression [Fatal]

NARRATIVE: CASE EVENT DATE: 20140926
